FAERS Safety Report 7530602-5 (Version None)
Quarter: 2011Q2

REPORT INFORMATION
  Report Type: 
  Country: None (occurrence: None)
  Receive Date: 20110607
  Receipt Date: 20110524
  Transmission Date: 20111010
  Serious: Yes (Hospitalization, Other)
  Sender: FDA-Public Use
  Company Number: US-BAYER-201028341NA

PATIENT
  Age: 23 Year
  Sex: Female
  Weight: 56.689 kg

DRUGS (17)
  1. DROSPIRENONE AND ETHINYL ESTRADIOL [Suspect]
     Indication: MENSTRUATION IRREGULAR
  2. YAZ [Suspect]
     Indication: MENSTRUATION IRREGULAR
  3. YASMIN [Suspect]
     Indication: DYSMENORRHOEA
     Route: 048
     Dates: start: 20070801, end: 20091001
  4. DROSPIRENONE AND ETHINYL ESTRADIOL [Suspect]
     Indication: DYSMENORRHOEA
     Dosage: UNK
     Dates: start: 20080808
  5. YAZ [Suspect]
     Indication: ACNE
  6. DROSPIRENONE AND ETHINYL ESTRADIOL [Suspect]
     Indication: ACNE
  7. NAPROXEN (ALEVE) [Concomitant]
  8. OXYCODONE HCL [Concomitant]
     Indication: PAIN MANAGEMENT
  9. ANESTHETICS, GENERAL [Concomitant]
     Dosage: UNK
     Dates: start: 20080829
  10. YASMIN [Suspect]
     Indication: MENSTRUATION IRREGULAR
  11. FLAGYL [Concomitant]
     Dosage: UNK
     Dates: start: 20080827
  12. YASMIN [Suspect]
     Indication: ACNE
  13. YAZ [Suspect]
     Indication: DYSMENORRHOEA
     Route: 048
  14. CIPROFLOXACIN HCL [Concomitant]
     Dosage: UNK
     Dates: start: 20080827
  15. FEMCON FE [Concomitant]
  16. HYDROCODONE BITARTRATE [Concomitant]
     Indication: PAIN MANAGEMENT
  17. ACIPHEX [Concomitant]
     Dosage: UNK
     Dates: start: 20080827

REACTIONS (3)
  - CHOLECYSTITIS CHRONIC [None]
  - GALLBLADDER INJURY [None]
  - MENORRHAGIA [None]
